FAERS Safety Report 16526715 (Version 1)
Quarter: 2019Q3

REPORT INFORMATION
  Report Type: Spontaneous
  Country: CN (occurrence: CN)
  Receive Date: 20190704
  Receipt Date: 20190704
  Transmission Date: 20191004
  Serious: Yes (Hospitalization)
  Sender: FDA-Public Use
  Company Number: PHHY2019CN152917

PATIENT
  Age: 12 Year
  Sex: Male
  Weight: 62 kg

DRUGS (3)
  1. NORVASC [Suspect]
     Active Substance: AMLODIPINE BESYLATE
     Indication: INTENTIONAL PRODUCT MISUSE
     Dosage: 10 TABLETS AT ONCE
     Route: 048
     Dates: start: 20190617, end: 20190617
  2. ATORVASTATIN CALCIUM. [Suspect]
     Active Substance: ATORVASTATIN CALCIUM
     Indication: INTENTIONAL PRODUCT MISUSE
     Dosage: 10 UNK, QD
     Route: 048
     Dates: start: 20190617, end: 20190617
  3. DIOVAN [Suspect]
     Active Substance: VALSARTAN
     Indication: INTENTIONAL PRODUCT MISUSE
     Dosage: 10 TABLETS AT ONCE
     Route: 048
     Dates: start: 20190617, end: 20190617

REACTIONS (4)
  - Flushing [Recovering/Resolving]
  - Weight increased [Recovering/Resolving]
  - Nausea [Recovering/Resolving]
  - Headache [Recovering/Resolving]

NARRATIVE: CASE EVENT DATE: 20190617
